FAERS Safety Report 24539412 (Version 1)
Quarter: 2024Q4

REPORT INFORMATION
  Report Type: Spontaneous
  Country: US (occurrence: None)
  Receive Date: 20241022
  Receipt Date: 20241022
  Transmission Date: 20250114
  Serious: Yes (Other)
  Sender: Public
  Company Number: None

PATIENT
  Age: 60 Year
  Sex: Female
  Weight: 108.41 kg

DRUGS (1)
  1. LEVOTHYROXINE [Suspect]
     Active Substance: LEVOTHYROXINE
     Dosage: FREQUENCY : DAILY;?

REACTIONS (3)
  - Diarrhoea [None]
  - Nausea [None]
  - Gastrointestinal disorder [None]
